FAERS Safety Report 22287673 (Version 2)
Quarter: 2023Q2

REPORT INFORMATION
  Report Type: Spontaneous
  Country: US (occurrence: US)
  Receive Date: 20230505
  Receipt Date: 20230509
  Transmission Date: 20230722
  Serious: Yes (Other)
  Sender: FDA-Public Use
  Company Number: None

PATIENT
  Age: 59 Year
  Sex: Female

DRUGS (2)
  1. NAPROXEN [Suspect]
     Active Substance: NAPROXEN
     Indication: Systemic lupus erythematosus
     Dosage: CHRONIC USE
     Route: 065
  2. NAPROXEN [Suspect]
     Active Substance: NAPROXEN
     Indication: Arthritis

REACTIONS (4)
  - Iron deficiency anaemia [Recovered/Resolved]
  - Gastrointestinal disorder [Recovered/Resolved]
  - Jejunal ulcer [Recovered/Resolved]
  - Off label use [Unknown]
